FAERS Safety Report 5982704-2 (Version None)
Quarter: 2008Q4

REPORT INFORMATION
  Report Type: 
  Country: None (occurrence: None)
  Receive Date: 20081205
  Receipt Date: 20081205
  Transmission Date: 20090506
  Serious: Yes (Other)
  Sender: FDA-Public Use
  Company Number: None

PATIENT
  Age: 25 Year
  Sex: Female
  Weight: 99.7913 kg

DRUGS (2)
  1. MIRENA [Suspect]
     Indication: CONTRACEPTION
     Dates: start: 20081203, end: 20081204
  2. MIRENA [Suspect]
     Indication: INFERTILITY FEMALE
     Dates: start: 20081203, end: 20081204

REACTIONS (6)
  - EYE PRURITUS [None]
  - EYE SWELLING [None]
  - HYPERSENSITIVITY [None]
  - STRESS [None]
  - SYNCOPE [None]
  - VISUAL ACUITY REDUCED [None]
